FAERS Safety Report 12069409 (Version 3)
Quarter: 2016Q1

REPORT INFORMATION
  Report Type: Report from Study
  Country: US (occurrence: US)
  Receive Date: 20160211
  Receipt Date: 20160224
  Transmission Date: 20160526
  Serious: Yes (Hospitalization, Other)
  Sender: FDA-Public Use
  Company Number: US-BAYER-2015-180908

PATIENT
  Age: 64 Year
  Sex: Female
  Weight: 113.38 kg

DRUGS (4)
  1. ADEMPAS [Suspect]
     Active Substance: RIOCIGUAT
     Indication: PULMONARY ARTERIAL HYPERTENSION
     Dosage: 2.5 MG, TID
     Route: 048
     Dates: start: 20150209
  2. ADEMPAS [Suspect]
     Active Substance: RIOCIGUAT
     Indication: PULMONARY ARTERIAL HYPERTENSION
     Dosage: 1.5 MG, TID
     Route: 048
  3. ADEMPAS [Suspect]
     Active Substance: RIOCIGUAT
     Indication: PULMONARY ARTERIAL HYPERTENSION
     Dosage: 2.5 MG, TID
     Route: 048
     Dates: start: 20150209
  4. ADEMPAS [Suspect]
     Active Substance: RIOCIGUAT
     Indication: PULMONARY ARTERIAL HYPERTENSION
     Dosage: UNK
     Dates: start: 20141125

REACTIONS (11)
  - Impaired gastric emptying [Unknown]
  - Pyrexia [Unknown]
  - Device related infection [Unknown]
  - Renal failure [Unknown]
  - Cardiac failure [None]
  - Pneumonia [None]
  - Fluid retention [Unknown]
  - Chronic kidney disease [None]
  - Blood potassium decreased [Unknown]
  - Peritoneal dialysis [Unknown]
  - Weight increased [None]

NARRATIVE: CASE EVENT DATE: 201506
